FAERS Safety Report 8621609-5 (Version None)
Quarter: 2012Q3

REPORT INFORMATION
  Report Type: 
  Country: None (occurrence: None)
  Receive Date: 20120820
  Receipt Date: 20120820
  Transmission Date: 20120928
  Serious: Yes (Hospitalization)
  Sender: FDA-Public Use
  Company Number: None

PATIENT
  Sex: Male
  Weight: 41.7 kg

DRUGS (12)
  1. NEUTRAPHOS [Concomitant]
  2. PROLEUKIN [Suspect]
     Indication: NEUROBLASTOMA
     Dosage: 4.5 MIU ON DAYS 0-4
     Dates: start: 20120723, end: 20120727
  3. IRINOTECAN HYDROCHLORIDE [Suspect]
     Indication: NEUROBLASTOMA
     Dosage: 250 MG
     Dates: start: 20120806
  4. OXALIPLATIN [Suspect]
     Indication: NEUROBLASTOMA
     Dosage: 120 MG IV
     Route: 042
     Dates: start: 20120806
  5. OXYCONTIN [Concomitant]
  6. BACTRIM [Concomitant]
  7. LORTAB PRN [Concomitant]
  8. ZOLEDRONIC [Suspect]
     Indication: NEUROBLASTOMA
     Dosage: 4 MG IV ON DAY 0
     Dates: start: 20120723
  9. GEMCITABINE HYDROCHLORIDE [Suspect]
     Indication: NEUROBLASTOMA
     Dosage: 1400 MG IV
     Route: 042
     Dates: start: 20120806
  10. GEMCITABINE HYDROCHLORIDE [Suspect]
     Indication: NEUROBLASTOMA
     Dosage: 1400 MG IV
     Route: 042
     Dates: start: 20120813
  11. CITRACAL D [Concomitant]
  12. ZOFRAN [Concomitant]

REACTIONS (1)
  - PANCREATITIS [None]
